FAERS Safety Report 6939140-1 (Version None)
Quarter: 2010Q3

REPORT INFORMATION
  Report Type: 
  Country: None (occurrence: None)
  Receive Date: 20100824
  Receipt Date: 20100811
  Transmission Date: 20110219
  Serious: Yes (Other)
  Sender: FDA-Public Use
  Company Number: US-PFIZER INC-2010101771

PATIENT
  Sex: Female
  Weight: 69.388 kg

DRUGS (1)
  1. SERTRALINE HYDROCHLORIDE [Suspect]
     Indication: NERVOUSNESS
     Dosage: 100 MG, DAILY
     Route: 048
     Dates: start: 20100601, end: 20100811

REACTIONS (2)
  - EXPIRED DRUG ADMINISTERED [None]
  - HYPERSENSITIVITY [None]
